FAERS Safety Report 9803513 (Version 1)
Quarter: 2014Q1

REPORT INFORMATION
  Report Type: Spontaneous
  Country: US (occurrence: US)
  Receive Date: 20140108
  Receipt Date: 20140108
  Transmission Date: 20141002
  Serious: No
  Sender: FDA-Public Use
  Company Number: US-GLAXOSMITHKLINE-A1003250A

PATIENT
  Sex: Male

DRUGS (4)
  1. LOVAZA [Suspect]
     Indication: BLOOD TRIGLYCERIDES INCREASED
     Dosage: 2G TWICE PER DAY
     Route: 048
     Dates: start: 2006
  2. PENTASA [Concomitant]
  3. ANAGRELIDE [Concomitant]
  4. ALPRAZOLAM [Concomitant]

REACTIONS (5)
  - Eructation [Unknown]
  - Flatulence [Recovering/Resolving]
  - Abdominal distension [Recovering/Resolving]
  - Extrasystoles [Unknown]
  - Therapeutic response unexpected [Unknown]
